FAERS Safety Report 5495744-7 (Version None)
Quarter: 2007Q4

REPORT INFORMATION
  Report Type: 
  Country: None (occurrence: None)
  Receive Date: 20071025
  Receipt Date: 20061106
  Transmission Date: 20080405
  Serious: No
  Sender: FDA-Public Use
  Company Number: A0623414A

PATIENT
  Age: 6 Year
  Sex: Male
  Weight: 19.5 kg

DRUGS (6)
  1. ADVAIR DISKUS 100/50 [Suspect]
     Indication: ASTHMA
     Dosage: 1PUFF TWICE PER DAY
     Route: 055
     Dates: start: 20060404, end: 20061019
  2. SINGULAIR [Concomitant]
  3. METHYLPREDNISOLONE [Concomitant]
  4. UNSPECIFIED MEDICATION [Concomitant]
  5. ALBUTEROL NEB [Concomitant]
  6. FLOVENT [Concomitant]
     Indication: ASTHMA
     Dosage: 66MCG TWICE PER DAY
     Route: 055
     Dates: start: 20061019

REACTIONS (3)
  - ACCIDENTAL OVERDOSE [None]
  - DISTURBANCE IN ATTENTION [None]
  - GROWTH RETARDATION [None]
